FAERS Safety Report 18811129 (Version 1)
Quarter: 2021Q1

REPORT INFORMATION
  Report Type: Spontaneous
  Country: US (occurrence: US)
  Receive Date: 20210130
  Receipt Date: 20210130
  Transmission Date: 20210419
  Serious: No
  Sender: FDA-Public Use
  Company Number: US-009507513-2101USA003828

PATIENT
  Age: 49 Year
  Sex: Male

DRUGS (2)
  1. NOXAFIL [Suspect]
     Active Substance: POSACONAZOLE
     Indication: MUCORMYCOSIS
     Dosage: UNK
     Route: 048
  2. NOXAFIL [Suspect]
     Active Substance: POSACONAZOLE
     Indication: PYELONEPHRITIS FUNGAL

REACTIONS (1)
  - Off label use [Unknown]
